FAERS Safety Report 22054746 (Version 1)
Quarter: 2023Q1

REPORT INFORMATION
  Report Type: Spontaneous
  Country: US (occurrence: None)
  Receive Date: 20230301
  Receipt Date: 20230301
  Transmission Date: 20230417
  Serious: No
  Sender: FDA-Public Use
  Company Number: None

PATIENT
  Sex: Female

DRUGS (1)
  1. OTEZLA [Suspect]
     Active Substance: APREMILAST
     Indication: Arthropathy
     Dosage: FREQUENCY : TWICE A DAY;?
     Route: 048
     Dates: start: 20220420

REACTIONS (1)
  - Drug ineffective [None]
